FAERS Safety Report 5178968-8 (Version None)
Quarter: 2006Q4

REPORT INFORMATION
  Report Type: 
  Country: None (occurrence: None)
  Receive Date: 20061213
  Receipt Date: 20061213
  Transmission Date: 20070319
  Serious: Yes (Other)
  Sender: FDA-Public Use
  Company Number: None

PATIENT
  Age: 35 Year
  Sex: Female
  Weight: 77.1115 kg

DRUGS (2)
  1. LEVAQUIN [Suspect]
     Indication: SINUSITIS
     Dosage: 500MG    1 TIME DAILY  PO
     Route: 048
     Dates: start: 20061122, end: 20061127
  2. CORTISONE ACETATE [Concomitant]

REACTIONS (10)
  - ASTHENIA [None]
  - ASTHENOPIA [None]
  - CONSTIPATION [None]
  - DISORIENTATION [None]
  - EAR PAIN [None]
  - FEELING ABNORMAL [None]
  - HEADACHE [None]
  - INSOMNIA [None]
  - LOSS OF CONSCIOUSNESS [None]
  - NECK PAIN [None]
